FAERS Safety Report 5406006-8 (Version None)
Quarter: 2007Q3

REPORT INFORMATION
  Report Type: 
  Country: None (occurrence: None)
  Receive Date: 20070802
  Receipt Date: 20070727
  Transmission Date: 20080115
  Serious: Yes (Death, Hospitalization)
  Sender: FDA-Public Use
  Company Number: TCI2007A03767

PATIENT
  Age: 8 Decade
  Sex: Male

DRUGS (6)
  1. ACTOS [Suspect]
     Indication: DIABETES MELLITUS
     Dosage: 30 MG (30 MG, 1 D) PER ORAL
     Route: 048
     Dates: start: 20060901, end: 20070301
  2. BASEN (VOGLIBOSE) [Concomitant]
  3. MUCOSTA (REBAMIPIDE) [Concomitant]
  4. GLIMICRON (GLICLAZIDE) [Concomitant]
  5. PERSELIN (ALLYLESTRENOL) [Concomitant]
  6. NICARDIPINE HYDROCHLORIDE [Concomitant]

REACTIONS (4)
  - ANAEMIA [None]
  - GENERAL PHYSICAL HEALTH DETERIORATION [None]
  - PLATELET AGGREGATION [None]
  - WHITE BLOOD CELL COUNT DECREASED [None]
